FAERS Safety Report 5450048-3 (Version None)
Quarter: 2007Q3

REPORT INFORMATION
  Report Type: 
  Country: None (occurrence: None)
  Receive Date: 20070912
  Receipt Date: 20070903
  Transmission Date: 20080115
  Serious: Yes (Hospitalization, Disabling)
  Sender: FDA-Public Use
  Company Number: FR-GILEAD-2007-0011011

PATIENT
  Sex: Male
  Weight: 75 kg

DRUGS (15)
  1. EMTRIVA [Suspect]
     Indication: HIV INFECTION
     Route: 048
     Dates: start: 20050501
  2. VIREAD [Suspect]
     Indication: HIV INFECTION
     Route: 048
     Dates: start: 20050501
  3. TRUVADA [Suspect]
     Dates: start: 20070716
  4. HEXAQUINE [Suspect]
     Indication: MUSCLE SPASMS
  5. NORVIR [Suspect]
     Route: 048
     Dates: start: 20050501
  6. REYATAZ [Suspect]
     Route: 048
     Dates: start: 20050501, end: 20070716
  7. ZELITREX [Concomitant]
     Route: 048
     Dates: start: 20060201
  8. MIXTARD HUMAN 70/30 [Concomitant]
  9. ATATRAX [Concomitant]
  10. BACTRIM [Concomitant]
  11. ASPEGIC 325 [Concomitant]
  12. LIORESAL [Concomitant]
  13. MAGNE B6 [Concomitant]
  14. PILOCARPIN [Concomitant]
  15. KALETRA [Concomitant]
     Dates: start: 20070716

REACTIONS (13)
  - ALANINE AMINOTRANSFERASE INCREASED [None]
  - ANTINUCLEAR ANTIBODY POSITIVE [None]
  - BILIRUBIN CONJUGATED INCREASED [None]
  - BLOOD BILIRUBIN INCREASED [None]
  - DRUG INEFFECTIVE [None]
  - EPIDERMAL NECROSIS [None]
  - HAEMOGLOBINAEMIA [None]
  - HAIR COLOUR CHANGES [None]
  - LYMPHOPROLIFERATIVE DISORDER [None]
  - PHOTOSENSITIVITY REACTION [None]
  - PRURITUS [None]
  - SKIN DEPIGMENTATION [None]
  - TOXIC SKIN ERUPTION [None]
